FAERS Safety Report 19690899 (Version 1)
Quarter: 2021Q3

REPORT INFORMATION
  Report Type: Spontaneous
  Country: US (occurrence: US)
  Receive Date: 20210812
  Receipt Date: 20210812
  Transmission Date: 20211014
  Serious: Yes (Other)
  Sender: FDA-Public Use
  Company Number: None

PATIENT
  Age: 14 Year
  Sex: Male
  Weight: 51.75 kg

DRUGS (2)
  1. NORDITROPIN [Concomitant]
     Active Substance: SOMATROPIN
  2. MIRALAX [Suspect]
     Active Substance: POLYETHYLENE GLYCOL 3350
     Indication: CONSTIPATION
     Dosage: ?          QUANTITY:2 CAPFULS (34 GRAMS);OTHER ROUTE:DISSOLVED IN LIQUID AND THEN TAKEN DRANK?
     Dates: start: 20210401, end: 20210807

REACTIONS (1)
  - Haematochezia [None]

NARRATIVE: CASE EVENT DATE: 20210808
